FAERS Safety Report 7585384-8 (Version None)
Quarter: 2011Q3

REPORT INFORMATION
  Report Type: 
  Country: None (occurrence: None)
  Receive Date: 20110701
  Receipt Date: 20091218
  Transmission Date: 20111222
  Serious: Yes (Death, Hospitalization, Other)
  Sender: FDA-Public Use
  Company Number: US-BAYER-201012134NA

PATIENT
  Age: 62 Year
  Sex: Female
  Weight: 50 kg

DRUGS (38)
  1. ZYRTEC [Concomitant]
     Route: 048
  2. PANCURONIUM [Concomitant]
     Dosage: 20 MG, UNK
     Route: 042
     Dates: start: 20020729, end: 20020729
  3. ZANTAC [Concomitant]
     Dosage: UNK
     Route: 048
     Dates: start: 20010101
  4. LESCOL [Concomitant]
     Route: 048
  5. ALLEGRA [Concomitant]
     Route: 048
  6. VANTIN [Concomitant]
     Route: 048
  7. PREVACID [Concomitant]
     Dosage: UNK
     Route: 048
     Dates: start: 20020201
  8. ALBUMIN (HUMAN) [Concomitant]
     Dosage: 500 ML BYPASS
     Dates: start: 20020729, end: 20020729
  9. TRASYLOL [Suspect]
     Indication: PRODUCT USED FOR UNKNOWN INDICATION
     Dosage: 100 ML CARDIOPULMONARY BYPASS PRIME
     Route: 042
     Dates: start: 20020729, end: 20020729
  10. MYSOLINE [Concomitant]
     Route: 048
  11. BICARBONAT [Concomitant]
     Dosage: 1 AMPULE
     Route: 042
     Dates: start: 20020729, end: 20020729
  12. MANNITOL [Concomitant]
     Dosage: 25 G BYPASS
     Dates: start: 20020729, end: 20020729
  13. TEGRETOL [Concomitant]
     Route: 048
  14. DEMADEX [Concomitant]
     Route: 048
  15. PROVENTIL [Concomitant]
  16. PEPCID [Concomitant]
     Route: 048
  17. GENTAMYCIN SULFATE [Concomitant]
     Dosage: 80 MG, UNK
     Route: 042
     Dates: start: 20020729, end: 20020729
  18. TRASYLOL [Suspect]
     Indication: MITRAL VALVE REPLACEMENT
     Dosage: 100 ML (LOADING DOSE)
     Route: 042
     Dates: start: 20020729, end: 20020729
  19. ATIVAN [Concomitant]
     Route: 048
  20. AUGMENTIN '125' [Concomitant]
     Dosage: UNK
     Route: 048
     Dates: start: 20020601
  21. ASPIRIN [Concomitant]
     Route: 048
  22. TRASYLOL [Suspect]
     Dosage: 25 ML/HOUR (INFUSION)
     Route: 042
     Dates: start: 20020729, end: 20020729
  23. LANOXIN [Concomitant]
     Route: 048
  24. ETOMIDATE [Concomitant]
     Dosage: 18 MG, UNK
     Route: 042
     Dates: start: 20020729, end: 20020729
  25. VERPAMIL HCL [Concomitant]
     Route: 048
  26. ZIAC [Concomitant]
     Route: 048
  27. CEFAZOLIN [Concomitant]
     Dosage: 1 G, UNK
     Route: 042
     Dates: start: 20020729, end: 20020729
  28. SUCCINYLCHOLINE CHLORIDE [Concomitant]
     Dosage: 100 MG, UNK
     Route: 042
     Dates: start: 20020729, end: 20020729
  29. MAGNESIUM [Concomitant]
     Dosage: UNK
     Route: 042
     Dates: start: 20020729, end: 20020729
  30. CARDIOPLEGIA [Concomitant]
     Dosage: 3500 ML BYPASS
     Dates: start: 20020729, end: 20020729
  31. TRICOR [Concomitant]
     Route: 048
  32. ATROVENT [Concomitant]
     Dosage: UNK
     Route: 048
     Dates: start: 19960501
  33. SUFENTANIL CITRATE [Concomitant]
     Dosage: 250 MG, UNK
     Route: 042
     Dates: start: 20020729, end: 20020729
  34. MIDAZOLAM HCL [Concomitant]
     Dosage: 4 MG, UNK
     Route: 042
     Dates: start: 20020729, end: 20020729
  35. NITROGLYCERIN [Concomitant]
     Dosage: TITRATED
     Route: 042
     Dates: start: 20020729, end: 20020729
  36. SOLU-MEDROL [Concomitant]
     Dosage: UNK
     Route: 042
     Dates: start: 20020729, end: 20020729
  37. HEPARIN [Concomitant]
     Dosage: 2000 U, UNK
     Route: 042
     Dates: start: 20020729, end: 20020729
  38. PROTAMINE SULFATE [Concomitant]
     Dosage: 520 MG, UNK
     Route: 042
     Dates: start: 20020729, end: 20020729

REACTIONS (13)
  - EMOTIONAL DISTRESS [None]
  - INJURY [None]
  - RENAL IMPAIRMENT [None]
  - MULTI-ORGAN FAILURE [None]
  - ANXIETY [None]
  - PAIN [None]
  - DEATH [None]
  - STRESS [None]
  - CEREBROVASCULAR ACCIDENT [None]
  - FEAR [None]
  - RENAL INJURY [None]
  - RENAL FAILURE [None]
  - UNEVALUABLE EVENT [None]
